FAERS Safety Report 17114059 (Version 3)
Quarter: 2020Q1

REPORT INFORMATION
  Report Type: Report from Study
  Country: US (occurrence: US)
  Receive Date: 20191205
  Receipt Date: 20200327
  Transmission Date: 20200409
  Serious: Yes (Hospitalization, Other)
  Sender: FDA-Public Use
  Company Number: PHHY2019US172682

PATIENT
  Age: 76 Year
  Sex: Male
  Weight: 102 kg

DRUGS (2)
  1. LAMPRENE [Suspect]
     Active Substance: CLOFAZIMINE
     Dosage: 100 MG, QD
     Route: 048
  2. LAMPRENE [Suspect]
     Active Substance: CLOFAZIMINE
     Indication: MYCOBACTERIUM AVIUM COMPLEX INFECTION
     Dosage: 50 MG, QD
     Route: 048
     Dates: start: 20190605

REACTIONS (11)
  - Dyspnoea [Recovering/Resolving]
  - Chest pain [Unknown]
  - Wheezing [Unknown]
  - Gastrooesophageal reflux disease [Unknown]
  - Concomitant disease aggravated [Recovered/Resolved]
  - Chills [Unknown]
  - Angina unstable [Recovered/Resolved]
  - Cough [Recovering/Resolving]
  - Pneumonitis [Recovered/Resolved]
  - Chronic kidney disease [Unknown]
  - Bronchiectasis [Recovered/Resolved]

NARRATIVE: CASE EVENT DATE: 20200227
